FAERS Safety Report 6869100-0 (Version None)
Quarter: 2010Q3

REPORT INFORMATION
  Report Type: 
  Country: None (occurrence: None)
  Receive Date: 20100722
  Receipt Date: 20081119
  Transmission Date: 20110219
  Serious: No
  Sender: FDA-Public Use
  Company Number: US-PFIZER INC-2008049650

PATIENT
  Sex: Female
  Weight: 62.727 kg

DRUGS (1)
  1. CHANTIX [Suspect]
     Indication: SMOKING CESSATION THERAPY
     Route: 048
     Dates: start: 20080519, end: 20080531

REACTIONS (5)
  - ANGER [None]
  - DYSGEUSIA [None]
  - MIDDLE INSOMNIA [None]
  - NIGHTMARE [None]
  - PERSONALITY CHANGE [None]
